FAERS Safety Report 12574595 (Version 1)
Quarter: 2016Q3

REPORT INFORMATION
  Report Type: Spontaneous
  Country: US (occurrence: US)
  Receive Date: 20160720
  Receipt Date: 20160720
  Transmission Date: 20161109
  Serious: No
  Sender: FDA-Public Use
  Company Number: US-ALLERGAN-1648647

PATIENT
  Sex: Male

DRUGS (1)
  1. TRIPTORELIN PAMOATE 3.75MG SUS [Suspect]
     Active Substance: TRIPTORELIN PAMOATE
     Indication: PROSTATIC DISORDER
     Dosage: UNK, UNKNOWN
     Route: 050
     Dates: start: 201503

REACTIONS (2)
  - Arthralgia [Not Recovered/Not Resolved]
  - Arthritis [Not Recovered/Not Resolved]
